FAERS Safety Report 21206148 (Version 3)
Quarter: 2022Q4

REPORT INFORMATION
  Report Type: Other
  Country: US (occurrence: None)
  Receive Date: 20220812
  Receipt Date: 20221025
  Transmission Date: 20230112
  Serious: Yes (Hospitalization)
  Sender: FDA-Public Use
  Company Number: US-ROCHE-3155191

PATIENT
  Age: 51 Year
  Sex: Female
  Weight: 75.364 kg

DRUGS (9)
  1. OCREVUS [Suspect]
     Active Substance: OCRELIZUMAB
     Indication: Multiple sclerosis
     Dosage: MOST RECENT INFUSION WAS ON /DEC/2021.
     Route: 042
     Dates: start: 202111
  2. OCREVUS [Suspect]
     Active Substance: OCRELIZUMAB
     Route: 042
  3. OCREVUS [Suspect]
     Active Substance: OCRELIZUMAB
     Route: 042
  4. LANTUS [Concomitant]
     Active Substance: INSULIN GLARGINE
     Route: 058
  5. VICTOZA [Concomitant]
     Active Substance: LIRAGLUTIDE
     Route: 058
  6. GLIMEPIRIDE [Concomitant]
     Active Substance: GLIMEPIRIDE
  7. GABAPENTIN [Concomitant]
     Active Substance: GABAPENTIN
  8. LOVASTATIN [Concomitant]
     Active Substance: LOVASTATIN
  9. HYDROCODONE [Concomitant]
     Active Substance: HYDROCODONE

REACTIONS (5)
  - Peripheral swelling [Not Recovered/Not Resolved]
  - Gait inability [Recovering/Resolving]
  - Neuroma [Not Recovered/Not Resolved]
  - Localised infection [Recovered/Resolved]
  - Fluid retention [Not Recovered/Not Resolved]

NARRATIVE: CASE EVENT DATE: 20220623
